FAERS Safety Report 5452627-6 (Version None)
Quarter: 2007Q3

REPORT INFORMATION
  Report Type: 
  Country: None (occurrence: None)
  Receive Date: 20070914
  Receipt Date: 20070912
  Transmission Date: 20080115
  Serious: Yes (Other)
  Sender: FDA-Public Use
  Company Number: DE-BRISTOL-MYERS SQUIBB COMPANY-13904412

PATIENT

DRUGS (5)
  1. IFOSFAMIDE [Suspect]
     Dosage: 6G/M2;VERSUS 3CYCLES OF VIP PLUS 1CYCLE OF HIGH DOSE 6400MG/M2
  2. CISPLATIN [Suspect]
     Dosage: +3CYCLES OF HIGH DOSE CARBOPLATIN 1500MG/M2;3 CYCLES OF VIP PLUS 1CYCLE OF HIGH DOSE 2200MG/M2
  3. ETOPOSIDE [Suspect]
     Dosage: 3CYCLES OF HIGH DOSE 1500MG/M2;3CYCLES OF VIP PLUS ONE CYCLE OF HIGH DOSE 1800MG/M2
  4. CARBOPLATIN [Suspect]
  5. CYCLOPHOSPHAMIDE [Suspect]

REACTIONS (8)
  - CARDIOTOXICITY [None]
  - DEHYDRATION [None]
  - FEBRILE NEUTROPENIA [None]
  - LETHARGY [None]
  - NEUROPATHY PERIPHERAL [None]
  - NEUTROPENIA [None]
  - RENAL FAILURE ACUTE [None]
  - SEPSIS [None]
